FAERS Safety Report 10787609 (Version 2)
Quarter: 2015Q1

REPORT INFORMATION
  Report Type: Report from Study
  Country: KR (occurrence: KR)
  Receive Date: 20150212
  Receipt Date: 20150311
  Transmission Date: 20150721
  Serious: Yes (Death, Hospitalization, Other)
  Sender: FDA-Public Use
  Company Number: KR-BRISTOL-MYERS SQUIBB COMPANY-BMS-2015-006478

PATIENT
  Age: 59 Year
  Sex: Female

DRUGS (5)
  1. IPILIMUMAB [Suspect]
     Active Substance: IPILIMUMAB
     Indication: METASTATIC MALIGNANT MELANOMA
     Dosage: 189 MG, Q3WK
     Route: 042
     Dates: start: 20141205, end: 20141226
  2. MORPHINE [Concomitant]
     Active Substance: MORPHINE
     Indication: PRODUCT USED FOR UNKNOWN INDICATION
     Route: 065
  3. FENTANYL. [Concomitant]
     Active Substance: FENTANYL
     Indication: PRODUCT USED FOR UNKNOWN INDICATION
     Dosage: 12 ?G, PRN
     Route: 065
  4. CEFTIZOXIME [Concomitant]
     Active Substance: CEFTIZOXIME
     Indication: PRODUCT USED FOR UNKNOWN INDICATION
     Route: 065
  5. CIPROFLOXACIN. [Concomitant]
     Active Substance: CIPROFLOXACIN
     Indication: PRODUCT USED FOR UNKNOWN INDICATION
     Route: 065

REACTIONS (3)
  - Hydronephrosis [Recovering/Resolving]
  - Malignant neoplasm progression [Fatal]
  - Urinary retention [Recovering/Resolving]

NARRATIVE: CASE EVENT DATE: 20150114
